FAERS Safety Report 18746844 (Version 1)
Quarter: 2021Q1

REPORT INFORMATION
  Report Type: Spontaneous
  Country: US (occurrence: US)
  Receive Date: 20210115
  Receipt Date: 20210115
  Transmission Date: 20210419
  Serious: No
  Sender: FDA-Public Use
  Company Number: US-GENERICUS, INC.-2020GNR00007

PATIENT
  Sex: Female

DRUGS (2)
  1. TOBRAMYCIN. [Suspect]
     Active Substance: TOBRAMYCIN
     Indication: CYSTIC FIBROSIS
     Dosage: 300 MG (1 VIAL), 2X/DAY FOR 28 DAYS ON AND 28 DAYS OFF
     Dates: start: 20190711
  2. TRIKAFTA [Suspect]
     Active Substance: ELEXACAFTOR\IVACAFTOR\TEZACAFTOR
     Dosage: UNK
     Dates: start: 20200220

REACTIONS (8)
  - Dizziness [Recovered/Resolved]
  - Influenza [Unknown]
  - Cough [Unknown]
  - Nasal congestion [Unknown]
  - Sputum increased [Unknown]
  - Nasopharyngitis [Unknown]
  - Pyrexia [Recovered/Resolved]
  - Oropharyngeal pain [Unknown]

NARRATIVE: CASE EVENT DATE: 2020
